FAERS Safety Report 6738998-9 (Version None)
Quarter: 2010Q2

REPORT INFORMATION
  Report Type: 
  Country: None (occurrence: None)
  Receive Date: 20100524
  Receipt Date: 20100524
  Transmission Date: 20101027
  Serious: Yes (Hospitalization)
  Sender: FDA-Public Use
  Company Number: None

PATIENT
  Age: 16 Year
  Sex: Female
  Weight: 67.44 kg

DRUGS (1)
  1. SERTRALINE HCL [Suspect]

REACTIONS (2)
  - INCORRECT DOSE ADMINISTERED [None]
  - SUICIDAL IDEATION [None]
